FAERS Safety Report 5909412-8 (Version None)
Quarter: 2008Q4

REPORT INFORMATION
  Report Type: 
  Country: None (occurrence: None)
  Receive Date: 20081006
  Receipt Date: 20081006
  Transmission Date: 20090506
  Serious: Yes (Other)
  Sender: FDA-Public Use
  Company Number: US-B.I. PHARMACEUTICALS,INC./RIDGEFIELD-2008-BP-15072BP

PATIENT
  Sex: Female

DRUGS (4)
  1. MICARDIS [Suspect]
     Indication: HYPERTENSION
     Dosage: 40MG
     Route: 048
     Dates: start: 20070101
  2. NON-BI DRUG [Suspect]
  3. NON-BI DRUG [Suspect]
  4. NITROGLYCERIN [Concomitant]
     Indication: HYPERTENSION

REACTIONS (9)
  - ANGINA PECTORIS [None]
  - BLOOD PRESSURE INCREASED [None]
  - COUGH [None]
  - HEART RATE DECREASED [None]
  - HEART RATE INCREASED [None]
  - NERVOUSNESS [None]
  - OROPHARYNGEAL PAIN [None]
  - TREMOR [None]
  - VISION BLURRED [None]
